FAERS Safety Report 7302119-4 (Version None)
Quarter: 2011Q1

REPORT INFORMATION
  Report Type: 
  Country: None (occurrence: None)
  Receive Date: 20110218
  Receipt Date: 20110214
  Transmission Date: 20110831
  Serious: Yes (Other)
  Sender: FDA-Public Use
  Company Number: FR-MERCK-1102FRA00107

PATIENT
  Age: 59 Year
  Sex: Female

DRUGS (4)
  1. METOPROLOL TARTRATE [Concomitant]
     Route: 048
     Dates: start: 19800101
  2. FOSAMAX PLUS D [Suspect]
     Indication: OSTEOPOROSIS
     Route: 048
     Dates: start: 20090710, end: 20101201
  3. HYDROXYCHLOROQUINE SULFATE [Concomitant]
     Route: 048
     Dates: start: 20080701
  4. OXETORONE FUMARATE [Concomitant]
     Route: 048
     Dates: start: 20080101

REACTIONS (2)
  - NEOPLASM MALIGNANT [None]
  - STOMATITIS [None]
